FAERS Safety Report 9397398 (Version 1)
Quarter: 2013Q3

REPORT INFORMATION
  Report Type: Spontaneous
  Country: BR (occurrence: BR)
  Receive Date: 20130712
  Receipt Date: 20130712
  Transmission Date: 20140515
  Serious: Yes (Other)
  Sender: FDA-Public Use
  Company Number: BR-SANOFI-AVENTIS-2013SA069196

PATIENT
  Age: 8 Year
  Sex: Female
  Weight: 33 kg

DRUGS (3)
  1. LANTUS SOLOSTAR [Suspect]
     Indication: TYPE 1 DIABETES MELLITUS
     Route: 058
     Dates: start: 201305
  2. SOLOSTAR [Suspect]
     Indication: DEVICE THERAPY
     Dates: start: 201305
  3. HUMALOG [Concomitant]
     Indication: BLOOD GLUCOSE
     Dosage: 10 IU DAILY (2 IU PER INJECTION)
     Route: 058
     Dates: start: 201305

REACTIONS (2)
  - Coeliac disease [Not Recovered/Not Resolved]
  - Blood immunoglobulin A increased [Not Recovered/Not Resolved]
